FAERS Safety Report 21039156 (Version 1)
Quarter: 2022Q3

REPORT INFORMATION
  Report Type: Spontaneous
  Country: CA (occurrence: None)
  Receive Date: 20220704
  Receipt Date: 20220704
  Transmission Date: 20221026
  Serious: Yes (Other)
  Sender: FDA-Public Use
  Company Number: CA-PFIZER INC-202200902837

PATIENT
  Age: 54 Year
  Sex: Female
  Weight: 72 kg

DRUGS (5)
  1. METHOTREXATE [Suspect]
     Active Substance: METHOTREXATE
     Indication: Product used for unknown indication
     Route: 065
     Dates: start: 2022
  2. INFLIXIMAB [Concomitant]
     Active Substance: INFLIXIMAB
     Indication: Crohn^s disease
     Dosage: EVERY 6 WEEKS
     Route: 042
     Dates: start: 20210127, end: 20211109
  3. INFLIXIMAB [Concomitant]
     Active Substance: INFLIXIMAB
     Dosage: EVERY 4 WEEKS
     Route: 042
     Dates: start: 20211223
  4. INFLIXIMAB [Concomitant]
     Active Substance: INFLIXIMAB
     Dosage: EVERY 4 WEEKS
     Route: 042
     Dates: start: 20220526
  5. INFLIXIMAB [Concomitant]
     Active Substance: INFLIXIMAB
     Dosage: EVERY 4 WEEKS
     Route: 042
     Dates: start: 20220623

REACTIONS (7)
  - Abdominal pain [Not Recovered/Not Resolved]
  - Abdominal distension [Not Recovered/Not Resolved]
  - Constipation [Not Recovered/Not Resolved]
  - Diarrhoea [Not Recovered/Not Resolved]
  - Flatulence [Not Recovered/Not Resolved]
  - Arthritis [Not Recovered/Not Resolved]
  - Pain in extremity [Not Recovered/Not Resolved]
